FAERS Safety Report 8374687-5 (Version None)
Quarter: 2012Q2

REPORT INFORMATION
  Report Type: 
  Country: None (occurrence: None)
  Receive Date: 20120521
  Receipt Date: 20110414
  Transmission Date: 20120825
  Serious: No
  Sender: FDA-Public Use
  Company Number: US-ASTRAZENECA-2011SE21757

PATIENT
  Sex: Female

DRUGS (5)
  1. PRILOSEC OTC [Suspect]
     Indication: HIATUS HERNIA
     Route: 048
     Dates: end: 20110406
  2. ASTHMA INHALER [Concomitant]
     Dosage: UNKNOWN
  3. WARFARIN SODIUM [Concomitant]
     Dosage: UNKNOWN
  4. FOLIC ACID [Concomitant]
     Dosage: UNKNOWN
  5. VITAMIN B COMPLEX CAP [Concomitant]
     Dosage: UNKNOWN

REACTIONS (3)
  - GASTRIC DISORDER [None]
  - CONSTIPATION [None]
  - ABDOMINAL PAIN UPPER [None]
